FAERS Safety Report 7222580-3 (Version None)
Quarter: 2011Q1

REPORT INFORMATION
  Report Type: 
  Country: None (occurrence: None)
  Receive Date: 20110106
  Receipt Date: 20110106
  Transmission Date: 20110831
  Serious: Yes (Other)
  Sender: FDA-Public Use
  Company Number: None

PATIENT
  Age: 62 Year
  Sex: Male
  Weight: 95.2554 kg

DRUGS (2)
  1. BUPROPION SR 150MG 12 TAB SANDOZ [Suspect]
     Dosage: 1 TAB 1 XD PO
     Route: 048
     Dates: start: 20090825, end: 20090830
  2. BUPROPION [Suspect]
     Dosage: 2 TABS EVENING 1 XD PO
     Route: 048

REACTIONS (5)
  - LETHARGY [None]
  - SOCIAL AVOIDANT BEHAVIOUR [None]
  - MOOD ALTERED [None]
  - PRODUCT SUBSTITUTION ISSUE [None]
  - DEPRESSION [None]
